FAERS Safety Report 10314499 (Version 5)
Quarter: 2015Q1

REPORT INFORMATION
  Report Type: Spontaneous
  Country: US (occurrence: US)
  Receive Date: 20140718
  Receipt Date: 20150130
  Transmission Date: 20150720
  Serious: Yes (Hospitalization, Other)
  Sender: FDA-Public Use
  Company Number: US-PFIZER INC-2014200995

PATIENT
  Age: 60 Year
  Sex: Female

DRUGS (20)
  1. PROGRAF [Concomitant]
     Active Substance: TACROLIMUS\TACROLIMUS ANHYDROUS
     Dosage: 0.5 MG, UNK, 8 AM: 1PILL, 8 PM: 1PILL
  2. SEPTRA [Concomitant]
     Active Substance: SULFAMETHOXAZOLE\TRIMETHOPRIM
     Indication: PNEUMONIA
     Dosage: 1 DF, ALTERNATE DAY
  3. CALCITRIOL. [Concomitant]
     Active Substance: CALCITRIOL
     Indication: BLOOD CALCIUM
     Dosage: 0.5 ?G, UNK, 8 AM: 2 PILL, 3 TIMES A WEEK
  4. PANTOPRAZOLE [Concomitant]
     Active Substance: PANTOPRAZOLE SODIUM
     Indication: ABDOMINAL PAIN UPPER
     Dosage: 40 MG, 1X/DAY, 8 AM: 1 PILL
  5. ESTRADIOL. [Concomitant]
     Active Substance: ESTRADIOL
     Indication: HORMONE LEVEL ABNORMAL
     Dosage: 2 MG, 1X/DAY, 8 AM: 1 PILL
  6. PREDNISONE. [Concomitant]
     Active Substance: PREDNISONE
     Indication: IMMUNOSUPPRESSION
     Dosage: 5 MG, 1X/DAY, 8 AM: 1PILL
  7. ASPIRIN EC [Concomitant]
     Active Substance: ASPIRIN
     Indication: BLOOD DISORDER
     Dosage: 81 MG, UNK, 8 AM: 1PILL EVERY DAY
  8. SIMVASTATIN. [Concomitant]
     Active Substance: SIMVASTATIN
     Indication: BLOOD CHOLESTEROL
     Dosage: 20 MG, UNK, 8 AM: 1PILL, 8 PM: 1 PILL, BED TIME: 1 PILL
  9. PROTONIX [Suspect]
     Active Substance: PANTOPRAZOLE SODIUM
     Indication: RENAL TRANSPLANT
     Dosage: 20 MG, 1X/DAY
  10. AMLODIPINE BESILATE [Concomitant]
     Active Substance: AMLODIPINE BESYLATE
     Indication: BLOOD PRESSURE
     Dosage: 5 MG, 1X/DAY, 8 AM:1 PILL
  11. HYDROCODONE [Concomitant]
     Active Substance: HYDROCODONE
  12. RAPAMUNE [Concomitant]
     Active Substance: SIROLIMUS
     Indication: IMMUNOSUPPRESSION
     Dosage: 0.5 MG, UNK, 8 AM: STOP, NOON: THU, BEDTIME: SAT
  13. METOPROLOL [Concomitant]
     Active Substance: METOPROLOL
     Indication: BLOOD PRESSURE
     Dosage: 50 MG, UNK, 8 AM: 1 PILL
  14. GLIPIZIDE. [Concomitant]
     Active Substance: GLIPIZIDE
     Indication: BLOOD GLUCOSE ABNORMAL
     Dosage: 5 MG, 3X/DAY, 8 AM: 2 PILLS, NOON: 1 PILL
  15. SERZONE [Concomitant]
     Active Substance: NEFAZODONE HYDROCHLORIDE
     Indication: MOOD SWINGS
     Dosage: 20 MG, UNK, 8 AM: 1 PILL, 8 PM: 1PILL
  16. ALPRAZOLAM. [Concomitant]
     Active Substance: ALPRAZOLAM
     Indication: MOOD SWINGS
     Dosage: 1 MG, 3X/DAY, 8 AM:1 PILL, NOON:1 PILL, 8 PM:1 PILL
  17. SYNTHROID [Concomitant]
     Active Substance: LEVOTHYROXINE SODIUM
     Indication: THYROID DISORDER
     Dosage: 0.075 MG, 1X/DAY,8 AM: 1 PILL
  18. MYFORTIC [Concomitant]
     Active Substance: MYCOPHENOLATE SODIUM
     Indication: IMMUNOSUPPRESSION
     Dosage: 360 MG, UNK, 8 AM: 2 PILLS, 8 PM: 2 PILLS
  19. ALLOPURINOL. [Concomitant]
     Active Substance: ALLOPURINOL
     Indication: GOUT
     Dosage: 150 MG,  8 AM: 150,1 PILL, 8 PM: 2 PILLS
  20. CIPRO [Concomitant]
     Active Substance: CIPROFLOXACIN HYDROCHLORIDE
     Indication: ANTIBIOTIC LEVEL
     Dosage: 500 MG, UNK

REACTIONS (2)
  - Arthritis [Not Recovered/Not Resolved]
  - Back disorder [Not Recovered/Not Resolved]

NARRATIVE: CASE EVENT DATE: 2006
